FAERS Safety Report 7672832-8 (Version None)
Quarter: 2011Q3

REPORT INFORMATION
  Report Type: 
  Country: None (occurrence: None)
  Receive Date: 20110809
  Receipt Date: 20110803
  Transmission Date: 20111222
  Serious: No
  Sender: FDA-Public Use
  Company Number: US-BAYER-2011-069211

PATIENT
  Sex: Female

DRUGS (3)
  1. MUSCLE RELAXANTS [Concomitant]
     Dosage: UNK
     Route: 048
     Dates: start: 20110803
  2. IBUPROFEN [Concomitant]
     Indication: PRODUCT USED FOR UNKNOWN INDICATION
     Dosage: DAILY DOSE 2 DF
     Route: 048
     Dates: start: 20110803
  3. ALEVE (CAPLET) [Suspect]
     Indication: PRODUCT USED FOR UNKNOWN INDICATION
     Dosage: DAILY DOSE 7 DF
     Route: 048
     Dates: start: 20110803

REACTIONS (1)
  - NO ADVERSE EVENT [None]
